FAERS Safety Report 11058508 (Version 1)
Quarter: 2015Q2

REPORT INFORMATION
  Report Type: Spontaneous
  Country: US (occurrence: None)
  Receive Date: 20150420
  Receipt Date: 20150420
  Transmission Date: 20150821
  Serious: No
  Sender: FDA-Public Use
  Company Number: AEGR001189

PATIENT
  Age: 50 Year
  Sex: Female
  Weight: 93.9 kg

DRUGS (9)
  1. DIOVAN [Concomitant]
     Active Substance: VALSARTAN
  2. JANUVIA [Concomitant]
     Active Substance: SITAGLIPTIN PHOSPHATE
  3. OMEGA 3 6 9 (OMEGA 9 FATTY ACIDS, OMEGA-3 FATTY ACIDS, OMEGA-6 FATTY ACIDS) [Concomitant]
  4. ZOFRAN (ONDANSETRON HYDROCHLORIDE) [Concomitant]
  5. JUXTAPID [Suspect]
     Active Substance: LOMITAPIDE MESYLATE
     Indication: TYPE IIA HYPERLIPIDAEMIA
     Dosage: 5 MG, QD, ORAL
     Route: 048
     Dates: start: 20150207, end: 201502
  6. ACYCLOVIR (ACICLOVIR SODIUM) [Concomitant]
  7. ASPIRIN (ACETYLSALICYLIC ACID) [Concomitant]
     Active Substance: ASPIRIN
  8. VITAMIN E [Concomitant]
     Active Substance: .ALPHA.-TOCOPHEROL
  9. SYNTHROID [Concomitant]
     Active Substance: LEVOTHYROXINE SODIUM

REACTIONS (7)
  - Pain [None]
  - Nausea [None]
  - Herpes zoster [None]
  - Neuralgia [None]
  - Abdominal pain upper [None]
  - Abdominal pain [None]
  - Therapy cessation [None]

NARRATIVE: CASE EVENT DATE: 20150210
